FAERS Safety Report 7272801-6 (Version None)
Quarter: 2011Q1

REPORT INFORMATION
  Report Type: 
  Country: None (occurrence: None)
  Receive Date: 20110203
  Receipt Date: 20110125
  Transmission Date: 20110831
  Serious: Yes (Death)
  Sender: FDA-Public Use
  Company Number: US-BAXTER-2011BH002066

PATIENT
  Age: 68 Year
  Sex: Female

DRUGS (2)
  1. DIANEAL [Suspect]
     Indication: PERITONEAL DIALYSIS
     Route: 033
     Dates: start: 20100224, end: 20110124
  2. DIANEAL [Suspect]
     Route: 033
     Dates: start: 20100224, end: 20110124

REACTIONS (1)
  - DEATH [None]
